FAERS Safety Report 14228994 (Version 2)
Quarter: 2018Q1

REPORT INFORMATION
  Report Type: Spontaneous
  Country: DO (occurrence: DO)
  Receive Date: 20171128
  Receipt Date: 20180110
  Transmission Date: 20180508
  Serious: Yes (Other)
  Sender: FDA-Public Use
  Company Number: FR-MERCK KGAA-2036112

PATIENT
  Age: 39 Year
  Sex: Female

DRUGS (1)
  1. NOVOTHYROX [Suspect]
     Active Substance: LEVOTHYROXINE SODIUM
     Indication: POST PROCEDURAL HYPOTHYROIDISM

REACTIONS (12)
  - Alopecia [None]
  - Dysphonia [None]
  - Memory impairment [None]
  - Peripheral coldness [None]
  - Blood cholesterol increased [None]
  - Dry skin [None]
  - Constipation [None]
  - Tachycardia [None]
  - Depression [Recovering/Resolving]
  - Feeling hot [None]
  - Insomnia [None]
  - Uterine disorder [None]
